FAERS Safety Report 6256282-7 (Version None)
Quarter: 2009Q3

REPORT INFORMATION
  Report Type: 
  Country: None (occurrence: None)
  Receive Date: 20090706
  Receipt Date: 20090629
  Transmission Date: 20100115
  Serious: Yes (Other)
  Sender: FDA-Public Use
  Company Number: US-BAYER-200916270NA

PATIENT
  Sex: Female

DRUGS (2)
  1. MIRENA [Suspect]
     Indication: DRUG USE FOR UNKNOWN INDICATION
     Dosage: CONTINUOUS
     Route: 015
     Dates: end: 20090409
  2. MIRENA [Suspect]
     Dosage: CONTINUOUS
     Route: 015

REACTIONS (4)
  - IUCD COMPLICATION [None]
  - IUD MIGRATION [None]
  - PAIN [None]
  - UTERINE DISORDER [None]
